FAERS Safety Report 12480312 (Version 2)
Quarter: 2016Q3

REPORT INFORMATION
  Report Type: Report from Study
  Country: US (occurrence: US)
  Receive Date: 20160620
  Receipt Date: 20160712
  Transmission Date: 20161109
  Serious: Yes (Hospitalization, Other)
  Sender: FDA-Public Use
  Company Number: US-BAYER-2016-045623

PATIENT
  Age: 85 Year
  Sex: Female
  Weight: 65.76 kg

DRUGS (7)
  1. ADEMPAS [Suspect]
     Active Substance: RIOCIGUAT
     Indication: PULMONARY ARTERIAL HYPERTENSION
     Dosage: 0.5 MG, TID
     Route: 048
     Dates: start: 20160224
  2. ADEMPAS [Suspect]
     Active Substance: RIOCIGUAT
     Indication: PULMONARY ARTERIAL HYPERTENSION
     Dosage: 1.5 MG, TID
     Route: 048
  3. ADEMPAS [Suspect]
     Active Substance: RIOCIGUAT
     Indication: PULMONARY ARTERIAL HYPERTENSION
     Dosage: 1 MG, TID
     Route: 048
  4. ADEMPAS [Suspect]
     Active Substance: RIOCIGUAT
     Indication: PULMONARY ARTERIAL HYPERTENSION
     Dosage: 2 MG, TID
     Route: 048
  5. DILTIAZEM. [Concomitant]
     Active Substance: DILTIAZEM
  6. ADEMPAS [Suspect]
     Active Substance: RIOCIGUAT
     Indication: PULMONARY ARTERIAL HYPERTENSION
     Dosage: 1.5 MG, TID
     Route: 048
  7. XARELTO [Concomitant]
     Active Substance: RIVAROXABAN
     Dosage: UNK

REACTIONS (11)
  - Fatigue [Unknown]
  - Dyspepsia [Unknown]
  - Oedema [Unknown]
  - Chills [Unknown]
  - Blood pressure diastolic decreased [Unknown]
  - Diarrhoea [Unknown]
  - Blood potassium decreased [Recovering/Resolving]
  - Dehydration [Recovering/Resolving]
  - Drug dose omission [Unknown]
  - Dyspnoea [Unknown]
  - Depression [Unknown]

NARRATIVE: CASE EVENT DATE: 20160502
